FAERS Safety Report 23011417 (Version 2)
Quarter: 2023Q4

REPORT INFORMATION
  Report Type: Spontaneous
  Country: US (occurrence: US)
  Receive Date: 20230929
  Receipt Date: 20231010
  Transmission Date: 20240110
  Serious: Yes (Hospitalization, Other)
  Sender: FDA-Public Use
  Company Number: US-BRISTOL-MYERS SQUIBB COMPANY-2023-137881

PATIENT
  Age: 86 Year
  Sex: Female

DRUGS (1)
  1. POMALYST [Suspect]
     Active Substance: POMALIDOMIDE
     Indication: Plasma cell myeloma
     Dosage: EVERY 3 DAYY FOR 21 DAYS AND 7 DAYS OFF
     Route: 048
     Dates: start: 20180419

REACTIONS (5)
  - Urinary tract infection [Unknown]
  - Atrial fibrillation [Unknown]
  - Syncope [Unknown]
  - Off label use [Unknown]
  - Full blood count decreased [Unknown]
